FAERS Safety Report 7300822-3 (Version None)
Quarter: 2011Q1

REPORT INFORMATION
  Report Type: 
  Country: None (occurrence: None)
  Receive Date: 20110103
  Receipt Date: 20091008
  Transmission Date: 20110831
  Serious: Yes (Life-Threatening, Hospitalization)
  Sender: FDA-Public Use
  Company Number: US-003543

PATIENT
  Age: 53 Year
  Sex: Female

DRUGS (3)
  1. LORAZEPAM [Concomitant]
  2. MULTIHANCE [Suspect]
     Indication: NUCLEAR MAGNETIC RESONANCE IMAGING
     Dosage: 15ML ONCE INTRAVENOUS
     Route: 042
     Dates: start: 20091006, end: 20091006
  3. MULTIHANCE [Suspect]
     Indication: MULTIPLE SCLEROSIS
     Dosage: 15ML ONCE INTRAVENOUS
     Route: 042
     Dates: start: 20091006, end: 20091006

REACTIONS (1)
  - ANAPHYLACTIC REACTION [None]
